FAERS Safety Report 6148232-9 (Version None)
Quarter: 2009Q2

REPORT INFORMATION
  Report Type: 
  Country: None (occurrence: None)
  Receive Date: 20090406
  Receipt Date: 20090326
  Transmission Date: 20091009
  Serious: Yes (Other)
  Sender: FDA-Public Use
  Company Number: CIP09000100

PATIENT
  Age: 63 Year
  Sex: Male
  Weight: 78.5 kg

DRUGS (16)
  1. ACTONEL [Suspect]
     Indication: OSTEOPOROSIS
     Dosage: ORAL
     Route: 048
     Dates: end: 20060905
  2. BONIVA [Suspect]
     Indication: OSTEOPOROSIS
     Dosage: MONTHLY
     Dates: start: 20060905, end: 20061117
  3. ACTONEL [Suspect]
     Indication: OSTEOPOROSIS
     Dosage: 35 MG ONCE A WEEK, ORAL
     Route: 048
     Dates: start: 20061117, end: 20070723
  4. BONIVA [Suspect]
     Indication: OSTEOPOROSIS
     Dosage: IV NOS
     Route: 042
     Dates: start: 20070723, end: 20080101
  5. ACTONEL [Suspect]
     Indication: OSTEOPOROSIS
     Dosage: 150MG ONCE A MONTH, ORAL
     Route: 048
     Dates: start: 20080101, end: 20080101
  6. CARDIOVASCULAR SYSTEM DRUGS [Concomitant]
  7. EFFEXOR /01233801/ (VENLAFAXINE) [Concomitant]
  8. FLOMAX /00889901/ (MORNIFLUMATE) [Concomitant]
  9. FENTANYL-100 [Concomitant]
  10. LORTAB [Suspect]
  11. XANAX [Concomitant]
  12. VITAMIN B12 /00056201/ (CYANOCOBALAMIN) [Concomitant]
  13. OXYCODONE HCL [Concomitant]
  14. LEVITRA [Concomitant]
  15. HYDROCHLOROTHIAZIDE [Concomitant]
  16. PREDNISONE TAB [Concomitant]

REACTIONS (19)
  - ABDOMINAL DISCOMFORT [None]
  - ACROCHORDON [None]
  - ARTHRALGIA [None]
  - BRONCHITIS [None]
  - COUGH [None]
  - DERMAL CYST [None]
  - DEVICE INTOLERANCE [None]
  - DRUG INEFFECTIVE [None]
  - INSOMNIA [None]
  - JOINT SWELLING [None]
  - LOOSE TOOTH [None]
  - MUSCULOSKELETAL PAIN [None]
  - NECK PAIN [None]
  - OEDEMA PERIPHERAL [None]
  - PAIN IN EXTREMITY [None]
  - SINUSITIS [None]
  - TOOTH FRACTURE [None]
  - TOOTH LOSS [None]
  - WEIGHT INCREASED [None]
